FAERS Safety Report 14244280 (Version 4)
Quarter: 2018Q1

REPORT INFORMATION
  Report Type: Spontaneous
  Country: US (occurrence: US)
  Receive Date: 20171201
  Receipt Date: 20180104
  Transmission Date: 20180508
  Serious: Yes (Hospitalization)
  Sender: FDA-Public Use
  Company Number: US-LUNDBECK-DKLU2040365

PATIENT
  Age: 60 Year
  Sex: Male
  Weight: 68 kg

DRUGS (7)
  1. POTASSIUM [Concomitant]
     Active Substance: POTASSIUM
     Indication: PRODUCT USED FOR UNKNOWN INDICATION
     Route: 065
  2. NORTHERA [Suspect]
     Active Substance: DROXIDOPA
     Dosage: SCHEDULE C; TITRATION COMPLETE
     Route: 048
     Dates: start: 20171127
  3. NORTHERA [Suspect]
     Active Substance: DROXIDOPA
     Dosage: INCREASED DOSE
     Route: 048
     Dates: start: 20171212
  4. OMEPRAZOLE. [Concomitant]
     Active Substance: OMEPRAZOLE
     Indication: PRODUCT USED FOR UNKNOWN INDICATION
     Route: 065
  5. ACYCLOVIR. [Concomitant]
     Active Substance: ACYCLOVIR
     Indication: PRODUCT USED FOR UNKNOWN INDICATION
     Route: 065
  6. NORTHERA [Suspect]
     Active Substance: DROXIDOPA
     Indication: AUTONOMIC NEUROPATHY
     Dosage: TITRATION SSCHEDULE C (TITRATING)
     Route: 048
     Dates: start: 20171116
  7. NORTHERA [Suspect]
     Active Substance: DROXIDOPA
     Route: 048
     Dates: start: 20171127

REACTIONS (14)
  - Syncope [Unknown]
  - Hypotension [Recovering/Resolving]
  - Visual impairment [Unknown]
  - Sepsis [Unknown]
  - Dehydration [Unknown]
  - Herpes zoster [Unknown]
  - Fatigue [Unknown]
  - Blood pressure abnormal [Unknown]
  - Asthenia [Recovering/Resolving]
  - Urinary tract infection [Recovered/Resolved]
  - Condition aggravated [Unknown]
  - Hypokalaemia [Recovering/Resolving]
  - Decreased appetite [Unknown]
  - Therapeutic response decreased [Unknown]

NARRATIVE: CASE EVENT DATE: 20171118
